FAERS Safety Report 11719906 (Version 18)
Quarter: 2018Q4

REPORT INFORMATION
  Report Type: Report from Study
  Country: DE (occurrence: DE)
  Receive Date: 20151110
  Receipt Date: 20181114
  Transmission Date: 20190204
  Serious: Yes (Hospitalization)
  Sender: FDA-Public Use
  Company Number: DE-ROCHE-1655838

PATIENT
  Age: 75 Year
  Sex: Female
  Weight: 63 kg

DRUGS (15)
  1. PARACETAMOL [Suspect]
     Active Substance: ACETAMINOPHEN
     Indication: PREMEDICATION
     Route: 048
     Dates: start: 20150928
  2. ONDANSETRON [Suspect]
     Active Substance: ONDANSETRON
     Indication: PREMEDICATION
  3. PREDNISOLON [Concomitant]
     Active Substance: PREDNISOLONE
     Indication: PREMEDICATION
     Route: 042
     Dates: start: 20150928
  4. DEXAMETHASON [Concomitant]
     Active Substance: DEXAMETHASONE
     Indication: PREMEDICATION
     Route: 048
     Dates: start: 20150929, end: 20160216
  5. RITUXIMAB. [Suspect]
     Active Substance: RITUXIMAB
     Indication: B-CELL LYMPHOMA
     Route: 042
     Dates: start: 20150928, end: 20150928
  6. BENDAMUSTINE HYDROCHLORIDE. [Suspect]
     Active Substance: BENDAMUSTINE HYDROCHLORIDE
     Indication: B-CELL LYMPHOMA
     Dosage: MOST RECENT DOSE ON 16/FEB/2016
     Route: 042
     Dates: start: 20150929
  7. BENDAMUSTINE HYDROCHLORIDE. [Suspect]
     Active Substance: BENDAMUSTINE HYDROCHLORIDE
     Indication: B-CELL LYMPHOMA
  8. TAVEGIL [Suspect]
     Active Substance: CLEMASTINE FUMARATE
     Indication: PREMEDICATION
     Route: 042
     Dates: start: 20150928
  9. TAVEGIL [Suspect]
     Active Substance: CLEMASTINE FUMARATE
     Dosage: DAY 1
     Route: 048
     Dates: start: 20151026, end: 20171027
  10. ONDANSETRON [Suspect]
     Active Substance: ONDANSETRON
     Indication: B-CELL LYMPHOMA
     Dosage: MOST RECENT DOSE:16/FEB/2016
     Route: 042
     Dates: start: 20150929
  11. METOPROLOL. [Concomitant]
     Active Substance: METOPROLOL
     Indication: HYPERTENSION
     Route: 048
     Dates: start: 20091007
  12. RITUXIMAB. [Suspect]
     Active Substance: RITUXIMAB
     Indication: B-CELL LYMPHOMA
  13. CIPROFLOXACIN. [Concomitant]
     Active Substance: CIPROFLOXACIN
     Indication: PRODUCT USED FOR UNKNOWN INDICATION
     Route: 065
     Dates: start: 20151121
  14. RITUXIMAB. [Suspect]
     Active Substance: RITUXIMAB
     Indication: B-CELL LYMPHOMA
     Route: 058
     Dates: start: 20151026, end: 20171027
  15. PARACETAMOL [Suspect]
     Active Substance: ACETAMINOPHEN
     Indication: B-CELL LYMPHOMA
     Dosage: DAY 1
     Route: 048
     Dates: start: 20151026, end: 20171027

REACTIONS (6)
  - Pneumonia [Recovered/Resolved]
  - Respiratory tract infection [Recovered/Resolved]
  - Leukopenia [Not Recovered/Not Resolved]
  - Cough [Recovered/Resolved]
  - Orthostatic intolerance [Recovered/Resolved]
  - Leukopenia [Recovered/Resolved]

NARRATIVE: CASE EVENT DATE: 20151030
